FAERS Safety Report 5565767-8 (Version None)
Quarter: 2007Q4

REPORT INFORMATION
  Report Type: 
  Country: None (occurrence: None)
  Receive Date: 20071218
  Receipt Date: 20071211
  Transmission Date: 20080405
  Serious: Yes (Other)
  Sender: FDA-Public Use
  Company Number: JP-MERCK-0712USA04559

PATIENT
  Age: 66 Year
  Sex: Female

DRUGS (4)
  1. FOSAMAX [Suspect]
     Indication: OSTEOPOROSIS
     Route: 048
     Dates: start: 20060904, end: 20071002
  2. FOSAMAX [Suspect]
     Route: 048
     Dates: start: 20071003, end: 20071130
  3. CALCIUM ASPARTATE [Suspect]
     Indication: OSTEOPOROSIS
     Route: 048
     Dates: start: 20060904, end: 20071130
  4. ALFAROL [Suspect]
     Indication: OSTEOPOROSIS
     Route: 048
     Dates: start: 20060904, end: 20071130

REACTIONS (1)
  - INTERSTITIAL LUNG DISEASE [None]
